FAERS Safety Report 17666432 (Version 2)
Quarter: 2023Q1

REPORT INFORMATION
  Report Type: Spontaneous
  Country: US (occurrence: None)
  Receive Date: 20200414
  Receipt Date: 20230224
  Transmission Date: 20230418
  Serious: Yes (Other)
  Sender: FDA-Public Use
  Company Number: 2020SE47789

PATIENT
  Age: 689 Month
  Sex: Male
  Weight: 56.7 kg

DRUGS (42)
  1. OMEPRAZOLE [Suspect]
     Active Substance: OMEPRAZOLE
     Indication: Gastric disorder
     Dosage: GENERIC
     Route: 065
     Dates: start: 200801, end: 201107
  2. OMEPRAZOLE [Suspect]
     Active Substance: OMEPRAZOLE
     Indication: Gastric disorder
     Dosage: GENERIC
     Route: 065
     Dates: start: 20110110, end: 20110731
  3. OMEPRAZOLE [Suspect]
     Active Substance: OMEPRAZOLE
     Indication: Gastric disorder
     Dosage: GENERIC
     Route: 065
     Dates: start: 20100614, end: 20101113
  4. OMEPRAZOLE [Suspect]
     Active Substance: OMEPRAZOLE
     Indication: Gastric disorder
     Dosage: GENERIC
     Route: 065
     Dates: start: 20090729, end: 20100527
  5. OMEPRAZOLE [Suspect]
     Active Substance: OMEPRAZOLE
     Indication: Gastric disorder
     Dosage: GENERIC
     Route: 065
     Dates: start: 20080108, end: 20080924
  6. PANTOPRAZOLE [Suspect]
     Active Substance: PANTOPRAZOLE
     Indication: Gastric disorder
     Dosage: GENERIC
     Route: 065
     Dates: start: 201612, end: 201802
  7. PANTOPRAZOLE [Suspect]
     Active Substance: PANTOPRAZOLE
     Indication: Gastric disorder
     Dosage: GENERIC
     Route: 065
     Dates: start: 20161201
  8. BACTRIM [Concomitant]
     Active Substance: SULFAMETHOXAZOLE\TRIMETHOPRIM
     Indication: Infection
     Dates: start: 2016, end: 2018
  9. ACETAMINOPHEN [Concomitant]
     Active Substance: ACETAMINOPHEN
     Indication: Pain
     Dates: start: 2017, end: 2019
  10. LORAZEPAM [Concomitant]
     Active Substance: LORAZEPAM
     Indication: Anxiety
     Dates: start: 2019
  11. CARBAMAZEPINE [Concomitant]
     Active Substance: CARBAMAZEPINE
     Dates: start: 2017
  12. CARBAMAZEPINE [Concomitant]
     Active Substance: CARBAMAZEPINE
     Dates: start: 2018
  13. FENTANYL CITRATE [Concomitant]
     Active Substance: FENTANYL CITRATE
     Dates: start: 2017
  14. PHENYTOIN [Concomitant]
     Active Substance: PHENYTOIN
     Dates: start: 2018
  15. SUCRALFATE [Concomitant]
     Active Substance: SUCRALFATE
  16. ASPIRIN [Concomitant]
     Active Substance: ASPIRIN
  17. MAGNESIUM [Concomitant]
     Active Substance: MAGNESIUM
  18. PEPCID [Concomitant]
     Active Substance: FAMOTIDINE
  19. ONDANSETRON [Concomitant]
     Active Substance: ONDANSETRON
  20. MORPHINE [Concomitant]
     Active Substance: MORPHINE
  21. SODIUM CHLORIDE [Concomitant]
     Active Substance: SODIUM CHLORIDE
  22. K-DUR [Concomitant]
     Active Substance: POTASSIUM CHLORIDE
  23. IOPAMIDOL [Concomitant]
     Active Substance: IOPAMIDOL
  24. LIDOCAINE [Concomitant]
     Active Substance: LIDOCAINE
  25. CEFAZOLIN [Concomitant]
     Active Substance: CEFAZOLIN
  26. ZOSYN [Concomitant]
     Active Substance: PIPERACILLIN SODIUM\TAZOBACTAM SODIUM
  27. AMIDATE [Concomitant]
     Active Substance: ETOMIDATE
  28. ROCURONIUM [Concomitant]
     Active Substance: ROCURONIUM BROMIDE
  29. HEPARIN [Concomitant]
     Active Substance: HEPARIN SODIUM
  30. PHOSPHORUS [Concomitant]
     Active Substance: PHOSPHORUS
  31. LACTIC ACID [Concomitant]
     Active Substance: LACTIC ACID
  32. DEXTROSE [Concomitant]
     Active Substance: DEXTROSE
  33. SERTRALINE [Concomitant]
     Active Substance: SERTRALINE HYDROCHLORIDE
  34. SODIUM FLUORIDE [Concomitant]
     Active Substance: SODIUM FLUORIDE
  35. ERGOCALCIFEROL [Concomitant]
     Active Substance: ERGOCALCIFEROL
  36. TEGRETOL [Concomitant]
     Active Substance: CARBAMAZEPINE
  37. DILANTIN [Concomitant]
     Active Substance: PHENYTOIN
  38. PROMETHAZINE [Concomitant]
     Active Substance: PROMETHAZINE HYDROCHLORIDE
  39. ACETAMINOPHEN\HYDROCODONE BITARTRATE [Concomitant]
     Active Substance: ACETAMINOPHEN\HYDROCODONE BITARTRATE
  40. CHLORHEXIDINE GLUCONATE [Concomitant]
     Active Substance: CHLORHEXIDINE GLUCONATE
  41. ENOXAPARIN SODIUM [Concomitant]
     Active Substance: ENOXAPARIN SODIUM
  42. LEVETIRACETAM [Concomitant]
     Active Substance: LEVETIRACETAM

REACTIONS (3)
  - Adenocarcinoma gastric [Not Recovered/Not Resolved]
  - Small intestine gangrene [Unknown]
  - Small intestinal perforation [Unknown]

NARRATIVE: CASE EVENT DATE: 20181201
